FAERS Safety Report 17885333 (Version 1)
Quarter: 2020Q2

REPORT INFORMATION
  Report Type: Spontaneous
  Country: US (occurrence: US)
  Receive Date: 20200611
  Receipt Date: 20200611
  Transmission Date: 20200714
  Serious: No
  Sender: FDA-Public Use
  Company Number: US-GALDERMA-US19074506

PATIENT
  Sex: Female

DRUGS (2)
  1. DIFFERIN [Suspect]
     Active Substance: ADAPALENE
     Indication: PRODUCT USED FOR UNKNOWN INDICATION
     Dosage: 0.1%
     Route: 061
  2. ELTA MD AM MOISTURIZER [Concomitant]
     Indication: PROPHYLAXIS
     Route: 061

REACTIONS (2)
  - Skin irritation [Unknown]
  - Drug ineffective [Unknown]
